FAERS Safety Report 11126988 (Version 1)
Quarter: 2015Q2

REPORT INFORMATION
  Report Type: Spontaneous
  Country: US (occurrence: US)
  Receive Date: 20150521
  Receipt Date: 20150521
  Transmission Date: 20150821
  Serious: No
  Sender: FDA-Public Use
  Company Number: US-009507513-1505USA009182

PATIENT
  Sex: Female

DRUGS (1)
  1. NUVARING [Suspect]
     Active Substance: ETHINYL ESTRADIOL\ETONOGESTREL
     Indication: CONTRACEPTION
     Dosage: STRENGTH WAS REPORTED AS ^0.015/0.12^, 1 RING / EVERY MONTH
     Route: 067

REACTIONS (1)
  - Vulvovaginal candidiasis [Not Recovered/Not Resolved]
